FAERS Safety Report 5220505-3 (Version None)
Quarter: 2007Q1

REPORT INFORMATION
  Report Type: 
  Country: None (occurrence: None)
  Receive Date: 20070126
  Receipt Date: 20070122
  Transmission Date: 20070707
  Serious: Yes (Other)
  Sender: FDA-Public Use
  Company Number: FR-JNJFOC-20070103729

PATIENT
  Sex: Female

DRUGS (2)
  1. REMICADE [Suspect]
     Indication: CHOLANGITIS SCLEROSING
     Route: 042
  2. REMICADE [Suspect]
     Indication: CROHN'S DISEASE
     Route: 042

REACTIONS (4)
  - DRUG INTOLERANCE [None]
  - ECZEMA [None]
  - GASTROINTESTINAL FUNGAL INFECTION [None]
  - SEBORRHOEIC DERMATITIS [None]
